FAERS Safety Report 6666331-X (Version None)
Quarter: 2010Q2

REPORT INFORMATION
  Report Type: 
  Country: None (occurrence: None)
  Receive Date: 20100402
  Receipt Date: 20100324
  Transmission Date: 20101027
  Serious: Yes (Other)
  Sender: FDA-Public Use
  Company Number: US-RB-027423-10

PATIENT
  Age: 34 Year
  Sex: Female

DRUGS (1)
  1. SUBOXONE [Suspect]
     Route: 060
     Dates: start: 20080101, end: 20090601

REACTIONS (3)
  - CONVULSION [None]
  - DRUG WITHDRAWAL SYNDROME [None]
  - LOSS OF CONSCIOUSNESS [None]
